FAERS Safety Report 13264179 (Version 1)
Quarter: 2017Q1

REPORT INFORMATION
  Report Type: Spontaneous
  Country: US (occurrence: US)
  Receive Date: 20170223
  Receipt Date: 20170223
  Transmission Date: 20170428
  Serious: No
  Sender: FDA-Public Use
  Company Number: None

PATIENT
  Age: 59 Year
  Sex: Female

DRUGS (5)
  1. SIMBRINZA [Suspect]
     Active Substance: BRIMONIDINE TARTRATE\BRINZOLAMIDE
     Indication: GLAUCOMA
     Dosage: DROP IN LEFT EYE
     Route: 047
     Dates: start: 201509, end: 201603
  2. VITAMIN MULTI [Concomitant]
  3. COQ10 [Concomitant]
     Active Substance: UBIDECARENONE
  4. ZOCOR [Concomitant]
     Active Substance: SIMVASTATIN
  5. LISINO HCTZ [Concomitant]

REACTIONS (4)
  - Breast pain [None]
  - Eye irritation [None]
  - Breast discomfort [None]
  - Discomfort [None]
